FAERS Safety Report 14039037 (Version 3)
Quarter: 2019Q3

REPORT INFORMATION
  Report Type: Report from Study
  Country: US (occurrence: US)
  Receive Date: 20171004
  Receipt Date: 20190822
  Transmission Date: 20191004
  Serious: Yes (Other)
  Sender: FDA-Public Use
  Company Number: US-SHIRE-US201724209

PATIENT
  Age: 65 Year
  Sex: Female

DRUGS (2)
  1. HUMAN NORMAL IMMUNOGLOBULIN; LIQUID 20 [Suspect]
     Active Substance: HUMAN IMMUNOGLOBULIN G
     Indication: IMMUNODEFICIENCY COMMON VARIABLE
     Dosage: 6 G, UNK (WEEKLY DIVIDED)
     Route: 058
     Dates: end: 201801
  2. HUMAN NORMAL IMMUNOGLOBULIN; LIQUID 20 [Suspect]
     Active Substance: HUMAN IMMUNOGLOBULIN G
     Dosage: EVERY 5 GRAM  3 DAYS
     Route: 042

REACTIONS (6)
  - Urinary tract infection [Recovered/Resolved]
  - Asthma [Unknown]
  - Headache [Unknown]
  - Kidney infection [Unknown]
  - Blood glucose increased [Unknown]
  - Pain [Unknown]

NARRATIVE: CASE EVENT DATE: 20170915
